FAERS Safety Report 7629041-8 (Version None)
Quarter: 2011Q3

REPORT INFORMATION
  Report Type: 
  Country: None (occurrence: None)
  Receive Date: 20110715
  Receipt Date: 20110630
  Transmission Date: 20111222
  Serious: Yes (Other)
  Sender: FDA-Public Use
  Company Number: AUR-APL-2011-03947

PATIENT
  Age: 65 Year
  Sex: Female

DRUGS (2)
  1. TOPIRAMATE [Suspect]
     Indication: MIGRAINE
     Dosage: 50 MG, 1 D
  2. CITALOPRAM HYDROBROMIDE [Suspect]
     Indication: DEPRESSION
     Dosage: 20 MG, 1 D

REACTIONS (8)
  - CONFUSIONAL STATE [None]
  - HYPERREFLEXIA [None]
  - SEROTONIN SYNDROME [None]
  - RESTLESSNESS [None]
  - MYOCLONUS [None]
  - TREMOR [None]
  - IRRITABILITY [None]
  - PYREXIA [None]
